FAERS Safety Report 8894162 (Version 1)
Quarter: 2012Q4

REPORT INFORMATION
  Report Type: 
  Country: US (occurrence: US)
  Receive Date: 20121108
  Receipt Date: 20121108
  Transmission Date: 20130627
  Serious: Yes (Hospitalization, Other)
  Sender: FDA-Public Use
  Company Number: US-PAR PHARMACEUTICAL, INC-2012SCPR004696

PATIENT

DRUGS (1)
  1. MINOCYCLINE HYDROCHLORIDE [Suspect]
     Indication: ACNE
     Dosage: UNK, Unknown
     Route: 065

REACTIONS (3)
  - Intracranial pressure increased [Recovering/Resolving]
  - Blindness [Recovering/Resolving]
  - Optic atrophy [Not Recovered/Not Resolved]
